FAERS Safety Report 10191377 (Version 1)
Quarter: 2014Q2

REPORT INFORMATION
  Report Type: Spontaneous
  Country: US (occurrence: None)
  Receive Date: 20140522
  Receipt Date: 20140522
  Transmission Date: 20141212
  Serious: No
  Sender: FDA-Public Use
  Company Number: None

PATIENT
  Age: 28 Year
  Sex: Male

DRUGS (1)
  1. CHLORPROMAZINE [Suspect]
     Indication: MENTAL DISORDER
     Dosage: 300MG, TID, ORAL, GREATER THAN 30 DAYS
     Route: 048

REACTIONS (3)
  - Dysarthria [None]
  - Gait disturbance [None]
  - Posture abnormal [None]
